FAERS Safety Report 7601263-1 (Version None)
Quarter: 2011Q3

REPORT INFORMATION
  Report Type: 
  Country: None (occurrence: None)
  Receive Date: 20110711
  Receipt Date: 20110628
  Transmission Date: 20111222
  Serious: Yes (Hospitalization)
  Sender: FDA-Public Use
  Company Number: GB-JNJFOC-20110612913

PATIENT
  Age: 54 Year
  Sex: Male
  Weight: 82 kg

DRUGS (4)
  1. REMICADE [Suspect]
     Indication: PSORIATIC ARTHROPATHY
     Route: 042
     Dates: start: 20110329
  2. FOLIC ACID [Concomitant]
     Route: 048
     Dates: start: 20081126
  3. LODINE [Concomitant]
     Route: 048
  4. METHOTREXATE [Concomitant]
     Route: 058
     Dates: start: 20081126, end: 20110601

REACTIONS (1)
  - PENIS CARCINOMA [None]
